FAERS Safety Report 22158647 (Version 1)
Quarter: 2023Q1

REPORT INFORMATION
  Report Type: Spontaneous
  Country: US (occurrence: US)
  Receive Date: 20230331
  Receipt Date: 20230331
  Transmission Date: 20230418
  Serious: Yes (Other)
  Sender: FDA-Public Use
  Company Number: US-STRIDES ARCOLAB LIMITED-2023SP003995

PATIENT
  Age: 16 Year
  Sex: Male

DRUGS (4)
  1. TRIAMCINOLONE ACETONIDE [Suspect]
     Active Substance: TRIAMCINOLONE ACETONIDE
     Indication: Pityriasis rosea
     Dosage: UNK, CREAM
     Route: 065
  2. TACROLIMUS [Suspect]
     Active Substance: TACROLIMUS
     Indication: Pityriasis rosea
     Dosage: UNK
     Route: 065
  3. MOMETASONE [Suspect]
     Active Substance: MOMETASONE
     Indication: Pityriasis rosea
     Dosage: UNK
     Route: 065
  4. DUPILUMAB [Concomitant]
     Active Substance: DUPILUMAB
     Indication: Dermatitis atopic
     Dosage: 300 MILLIGRAM, PER 2 WEEKS
     Route: 058

REACTIONS (1)
  - Therapy non-responder [Unknown]
